FAERS Safety Report 16236357 (Version 1)
Quarter: 2019Q2

REPORT INFORMATION
  Report Type: Spontaneous
  Country: US (occurrence: US)
  Receive Date: 20190425
  Receipt Date: 20190425
  Transmission Date: 20190711
  Serious: Yes (Life-Threatening, Hospitalization, Other)
  Sender: FDA-Public Use
  Company Number: US-BION-007946

PATIENT
  Age: 43 Year
  Sex: Female

DRUGS (1)
  1. LOPERAMIDE HYDROCHLORIDE. [Suspect]
     Active Substance: LOPERAMIDE HYDROCHLORIDE
     Dosage: RECREATIONAL USAGE AT APPROXIMATELY 400 MG IN THE LAST 24 HOURS

REACTIONS (2)
  - Ventricular tachycardia [Recovered/Resolved]
  - Drug abuse [Unknown]
